FAERS Safety Report 25305854 (Version 6)
Quarter: 2025Q4

REPORT INFORMATION
  Report Type: Report from Study
  Country: JP (occurrence: JP)
  Receive Date: 20250513
  Receipt Date: 20251006
  Transmission Date: 20260118
  Serious: Yes (Hospitalization, Other)
  Sender: SANOFI AVENTIS
  Company Number: JP-SA-2025SA131225

PATIENT
  Age: 81 Year
  Sex: Female
  Weight: 65.2 kg

DRUGS (125)
  1. ISATUXIMAB [Suspect]
     Active Substance: ISATUXIMAB
     Indication: Plasma cell myeloma refractory
     Dosage: 10 MG/KG, QW
     Route: 041
     Dates: start: 20230803, end: 20230824
  2. ISATUXIMAB [Suspect]
     Active Substance: ISATUXIMAB
     Dosage: 10 MG/KG, QOW
     Route: 041
     Dates: start: 20230912, end: 20231024
  3. ISATUXIMAB [Suspect]
     Active Substance: ISATUXIMAB
     Dosage: 10 MG/KG, QOW
     Route: 041
     Dates: start: 20231114, end: 20231226
  4. ISATUXIMAB [Suspect]
     Active Substance: ISATUXIMAB
     Dosage: 10 MG/KG, QOW
     Route: 041
     Dates: start: 20240220, end: 20240305
  5. ISATUXIMAB [Suspect]
     Active Substance: ISATUXIMAB
     Dosage: 10 MG/KG, QOW
     Route: 041
     Dates: start: 20240318, end: 20240401
  6. ISATUXIMAB [Suspect]
     Active Substance: ISATUXIMAB
     Dosage: 10 MG/KG, QOW
     Route: 041
     Dates: start: 20240416, end: 20240430
  7. ISATUXIMAB [Suspect]
     Active Substance: ISATUXIMAB
     Dosage: 10 MG/KG, QOW
     Route: 041
     Dates: start: 20240521, end: 20240730
  8. ISATUXIMAB [Suspect]
     Active Substance: ISATUXIMAB
     Dosage: 10 MG/KG, 1X
     Route: 041
     Dates: start: 20240819, end: 20240819
  9. ISATUXIMAB [Suspect]
     Active Substance: ISATUXIMAB
     Dosage: 10 MG/KG, 1X
     Route: 041
     Dates: start: 20240903, end: 20240903
  10. ISATUXIMAB [Suspect]
     Active Substance: ISATUXIMAB
     Dosage: 10 MG/KG, QOW
     Route: 041
     Dates: start: 20240924, end: 20241217
  11. ISATUXIMAB [Suspect]
     Active Substance: ISATUXIMAB
     Dosage: 10 MG/KG, 1X
     Route: 041
     Dates: start: 20250128, end: 20250128
  12. ISATUXIMAB [Suspect]
     Active Substance: ISATUXIMAB
     Dosage: 10 MG/KG, 1X
     Route: 041
     Dates: start: 20250210, end: 20250210
  13. DEXAMETHASONE [Suspect]
     Active Substance: DEXAMETHASONE
     Indication: Plasma cell myeloma refractory
     Dosage: 20 MG, QD
     Route: 065
     Dates: start: 20230926, end: 20230927
  14. DEXAMETHASONE [Suspect]
     Active Substance: DEXAMETHASONE
     Dosage: 20 MG, QW
     Route: 065
     Dates: start: 20230803, end: 20230824
  15. DEXAMETHASONE [Suspect]
     Active Substance: DEXAMETHASONE
     Dosage: 20 MG, 1X
     Route: 065
     Dates: start: 20230825, end: 20230825
  16. DEXAMETHASONE [Suspect]
     Active Substance: DEXAMETHASONE
     Dosage: 20 MG, QD
     Route: 065
     Dates: start: 20230912, end: 20230913
  17. DEXAMETHASONE [Suspect]
     Active Substance: DEXAMETHASONE
     Dosage: 20 MG, QD
     Route: 065
     Dates: start: 20230919, end: 20230920
  18. DEXAMETHASONE [Suspect]
     Active Substance: DEXAMETHASONE
     Dosage: 20 MG, QD
     Route: 065
     Dates: start: 20231010, end: 20231011
  19. DEXAMETHASONE [Suspect]
     Active Substance: DEXAMETHASONE
     Dosage: 20 MG, QD
     Route: 065
     Dates: start: 20231017, end: 20231018
  20. DEXAMETHASONE [Suspect]
     Active Substance: DEXAMETHASONE
     Dosage: 20 MG/DAY
     Route: 065
     Dates: start: 20231024, end: 20231115
  21. DEXAMETHASONE [Suspect]
     Active Substance: DEXAMETHASONE
     Dosage: 20 MG, 1X
     Route: 065
     Dates: start: 20231116, end: 20231116
  22. DEXAMETHASONE [Suspect]
     Active Substance: DEXAMETHASONE
     Dosage: 20 MG, QD
     Route: 065
     Dates: start: 20231121, end: 20231122
  23. DEXAMETHASONE [Suspect]
     Active Substance: DEXAMETHASONE
     Dosage: 20 MG, 1X
     Route: 065
     Dates: start: 20231128, end: 20231128
  24. DEXAMETHASONE [Suspect]
     Active Substance: DEXAMETHASONE
     Dosage: 20 MG/DAY
     Route: 065
     Dates: start: 20231212, end: 20231215
  25. DEXAMETHASONE [Suspect]
     Active Substance: DEXAMETHASONE
     Dosage: 20 MG, QD
     Route: 065
     Dates: start: 20231219, end: 20231220
  26. DEXAMETHASONE [Suspect]
     Active Substance: DEXAMETHASONE
     Dosage: 20 MG, QD
     Route: 065
     Dates: start: 20231226, end: 20231227
  27. DEXAMETHASONE [Suspect]
     Active Substance: DEXAMETHASONE
     Dosage: 20 MG/DAY
     Route: 065
     Dates: start: 20240220, end: 20240223
  28. DEXAMETHASONE [Suspect]
     Active Substance: DEXAMETHASONE
     Dosage: 20 MG, QD
     Route: 065
     Dates: start: 20240227, end: 20240228
  29. DEXAMETHASONE [Suspect]
     Active Substance: DEXAMETHASONE
     Dosage: 20 MG, QD
     Route: 065
     Dates: start: 20240305, end: 20240306
  30. DEXAMETHASONE [Suspect]
     Active Substance: DEXAMETHASONE
     Dosage: 20 MG/DAY
     Route: 065
     Dates: start: 20240318, end: 20240321
  31. DEXAMETHASONE [Suspect]
     Active Substance: DEXAMETHASONE
     Dosage: 20 MG, QD
     Route: 065
     Dates: start: 20240325, end: 20240326
  32. DEXAMETHASONE [Suspect]
     Active Substance: DEXAMETHASONE
     Dosage: 20 MG, 1X
     Route: 065
     Dates: start: 20240401, end: 20240401
  33. DEXAMETHASONE [Suspect]
     Active Substance: DEXAMETHASONE
     Dosage: 20 MG/DAY
     Route: 065
     Dates: start: 20240416, end: 20240419
  34. DEXAMETHASONE [Suspect]
     Active Substance: DEXAMETHASONE
     Dosage: 20 MG, QD
     Route: 065
     Dates: start: 20240423, end: 20240424
  35. DEXAMETHASONE [Suspect]
     Active Substance: DEXAMETHASONE
     Dosage: 20 MG, 1X
     Route: 065
     Dates: start: 20240430, end: 20240430
  36. DEXAMETHASONE [Suspect]
     Active Substance: DEXAMETHASONE
     Dosage: 20 MG/DAY
     Route: 065
     Dates: start: 20240521, end: 20240524
  37. DEXAMETHASONE [Suspect]
     Active Substance: DEXAMETHASONE
     Dosage: 20 MG, QD
     Route: 065
     Dates: start: 20240528, end: 20240529
  38. DEXAMETHASONE [Suspect]
     Active Substance: DEXAMETHASONE
     Dosage: 20 MG, QD
     Route: 065
     Dates: start: 20240604, end: 20240605
  39. DEXAMETHASONE [Suspect]
     Active Substance: DEXAMETHASONE
     Dosage: 20 MG/DAY
     Route: 065
     Dates: start: 20240618, end: 20240621
  40. DEXAMETHASONE [Suspect]
     Active Substance: DEXAMETHASONE
     Dosage: 20 MG, QD
     Route: 065
     Dates: start: 20240625, end: 20240626
  41. DEXAMETHASONE [Suspect]
     Active Substance: DEXAMETHASONE
     Dosage: 20 MG, QD
     Route: 065
     Dates: start: 20240702, end: 20240703
  42. DEXAMETHASONE [Suspect]
     Active Substance: DEXAMETHASONE
     Dosage: 20 MG/DAY
     Route: 065
     Dates: start: 20240716, end: 20240719
  43. DEXAMETHASONE [Suspect]
     Active Substance: DEXAMETHASONE
     Dosage: 20 MG, QD
     Route: 065
     Dates: start: 20240723, end: 20240724
  44. DEXAMETHASONE [Suspect]
     Active Substance: DEXAMETHASONE
     Dosage: 20 MG, QD
     Route: 065
     Dates: start: 20240730, end: 20240731
  45. DEXAMETHASONE [Suspect]
     Active Substance: DEXAMETHASONE
     Dosage: 20 MG/DAY
     Route: 065
     Dates: start: 20240819, end: 20240822
  46. DEXAMETHASONE [Suspect]
     Active Substance: DEXAMETHASONE
     Dosage: 20 MG/DAY
     Route: 048
     Dates: start: 20240824, end: 20240826
  47. DEXAMETHASONE [Suspect]
     Active Substance: DEXAMETHASONE
     Dosage: 20 MG, QD
     Route: 065
     Dates: start: 20240827, end: 20240828
  48. DEXAMETHASONE [Suspect]
     Active Substance: DEXAMETHASONE
     Dosage: 20 MG, QD
     Route: 065
     Dates: start: 20240903, end: 20240904
  49. DEXAMETHASONE [Suspect]
     Active Substance: DEXAMETHASONE
     Dosage: 20 MG, QD
     Route: 065
     Dates: start: 20240924, end: 20240925
  50. DEXAMETHASONE [Suspect]
     Active Substance: DEXAMETHASONE
     Dosage: 20 MG, QD
     Route: 065
     Dates: start: 20241001, end: 20241002
  51. DEXAMETHASONE [Suspect]
     Active Substance: DEXAMETHASONE
     Dosage: 20 MG, QD
     Route: 065
     Dates: start: 20241008, end: 20241009
  52. DEXAMETHASONE [Suspect]
     Active Substance: DEXAMETHASONE
     Dosage: 20 MG, QD
     Route: 065
     Dates: start: 20241022, end: 20241023
  53. DEXAMETHASONE [Suspect]
     Active Substance: DEXAMETHASONE
     Dosage: 20 MG, 1X
     Route: 065
     Dates: start: 20241030, end: 20241030
  54. DEXAMETHASONE [Suspect]
     Active Substance: DEXAMETHASONE
     Dosage: 20 MG, 1X
     Route: 065
     Dates: start: 20241105, end: 20241105
  55. DEXAMETHASONE [Suspect]
     Active Substance: DEXAMETHASONE
     Dosage: 20 MG, QD
     Route: 065
     Dates: start: 20241119, end: 20241120
  56. DEXAMETHASONE [Suspect]
     Active Substance: DEXAMETHASONE
     Dosage: 20 MG, 1X
     Route: 065
     Dates: start: 20241127, end: 20241127
  57. DEXAMETHASONE [Suspect]
     Active Substance: DEXAMETHASONE
     Dosage: 20 MG, 1X
     Route: 065
     Dates: start: 20241129, end: 20241129
  58. DEXAMETHASONE [Suspect]
     Active Substance: DEXAMETHASONE
     Dosage: 20 MG, QD
     Route: 065
     Dates: start: 20241203, end: 20241204
  59. DEXAMETHASONE [Suspect]
     Active Substance: DEXAMETHASONE
     Dosage: 20 MG, QD
     Route: 065
     Dates: start: 20241217, end: 20241218
  60. DEXAMETHASONE [Suspect]
     Active Substance: DEXAMETHASONE
     Dosage: 20 MG, QD
     Route: 065
     Dates: start: 20241224, end: 20241225
  61. DEXAMETHASONE [Suspect]
     Active Substance: DEXAMETHASONE
     Dosage: 20 MG, QD
     Route: 065
     Dates: start: 20250114, end: 20250115
  62. DEXAMETHASONE [Suspect]
     Active Substance: DEXAMETHASONE
     Dosage: 20 MG, QD
     Route: 065
     Dates: start: 20250128, end: 20250129
  63. CARFILZOMIB [Suspect]
     Active Substance: CARFILZOMIB
     Indication: Plasma cell myeloma refractory
     Dosage: 20 MG/M2/DAY
     Route: 065
     Dates: start: 20230803, end: 20230804
  64. CARFILZOMIB [Suspect]
     Active Substance: CARFILZOMIB
     Dosage: 56MG/M2/DAY
     Route: 065
     Dates: start: 20230810, end: 20230810
  65. CARFILZOMIB [Suspect]
     Active Substance: CARFILZOMIB
     Dosage: 56 MG/M2/DAY
     Route: 065
     Dates: start: 20230814, end: 20230814
  66. CARFILZOMIB [Suspect]
     Active Substance: CARFILZOMIB
     Dosage: 56 MG/M2/DAY
     Route: 065
     Dates: start: 20230817, end: 20230818
  67. CARFILZOMIB [Suspect]
     Active Substance: CARFILZOMIB
     Dosage: 56 MG/M2/DAY
     Route: 065
     Dates: start: 20230912, end: 20230913
  68. CARFILZOMIB [Suspect]
     Active Substance: CARFILZOMIB
     Dosage: 56 MG/M2/DAY
     Route: 065
     Dates: start: 20230919, end: 20230920
  69. CARFILZOMIB [Suspect]
     Active Substance: CARFILZOMIB
     Dosage: 56 MG/M2/DAY
     Route: 065
     Dates: start: 20230926, end: 20230927
  70. CARFILZOMIB [Suspect]
     Active Substance: CARFILZOMIB
     Dosage: 56 MG/M2/DAY
     Route: 065
     Dates: start: 20231010, end: 20231011
  71. CARFILZOMIB [Suspect]
     Active Substance: CARFILZOMIB
     Dosage: 56 MG/M2/DAY
     Route: 065
     Dates: start: 20231017, end: 20231018
  72. CARFILZOMIB [Suspect]
     Active Substance: CARFILZOMIB
     Dosage: 56 MG/M2/DAY
     Route: 065
     Dates: start: 20231024, end: 20231025
  73. CARFILZOMIB [Suspect]
     Active Substance: CARFILZOMIB
     Dosage: 56 MG/M2/DAY
     Route: 065
     Dates: start: 20231114, end: 20231114
  74. CARFILZOMIB [Suspect]
     Active Substance: CARFILZOMIB
     Dosage: 56 MG/M2/DAY
     Route: 065
     Dates: start: 20231116, end: 20231116
  75. CARFILZOMIB [Suspect]
     Active Substance: CARFILZOMIB
     Dosage: 56 MG/M2/DAY
     Route: 065
     Dates: start: 20231121, end: 20231122
  76. CARFILZOMIB [Suspect]
     Active Substance: CARFILZOMIB
     Dosage: 56 MG/M2/DAY
     Route: 065
     Dates: start: 20231128, end: 20231129
  77. CARFILZOMIB [Suspect]
     Active Substance: CARFILZOMIB
     Dosage: 56 MG/M2/DAY
     Route: 065
     Dates: start: 20231212, end: 20231213
  78. CARFILZOMIB [Suspect]
     Active Substance: CARFILZOMIB
     Dosage: 56 MG/M2/DAY
     Route: 065
     Dates: start: 20231219, end: 20231220
  79. CARFILZOMIB [Suspect]
     Active Substance: CARFILZOMIB
     Dosage: 56 MG/M2/DAY
     Route: 065
     Dates: start: 20231226, end: 20231227
  80. CARFILZOMIB [Suspect]
     Active Substance: CARFILZOMIB
     Dosage: 56 MG/M2/DAY
     Route: 065
     Dates: start: 20240220, end: 20240221
  81. CARFILZOMIB [Suspect]
     Active Substance: CARFILZOMIB
     Dosage: 56 MG/M2/DAY
     Route: 065
     Dates: start: 20240227, end: 20240228
  82. CARFILZOMIB [Suspect]
     Active Substance: CARFILZOMIB
     Dosage: 56 MG/M2/DAY
     Route: 065
     Dates: start: 20240305, end: 20240306
  83. CARFILZOMIB [Suspect]
     Active Substance: CARFILZOMIB
     Dosage: 56 MG/M2/DAY
     Route: 065
     Dates: start: 20240318, end: 20240319
  84. CARFILZOMIB [Suspect]
     Active Substance: CARFILZOMIB
     Dosage: 56 MG/M2/DAY
     Route: 065
     Dates: start: 20240325, end: 20240326
  85. CARFILZOMIB [Suspect]
     Active Substance: CARFILZOMIB
     Dosage: 56 MG/M2/DAY
     Route: 065
     Dates: start: 20240401, end: 20240402
  86. CARFILZOMIB [Suspect]
     Active Substance: CARFILZOMIB
     Dosage: 56 MG/M2/DAY
     Route: 065
     Dates: start: 20240416, end: 20240417
  87. CARFILZOMIB [Suspect]
     Active Substance: CARFILZOMIB
     Dosage: 56 MG/M2/DAY
     Route: 065
     Dates: start: 20240423, end: 20240424
  88. CARFILZOMIB [Suspect]
     Active Substance: CARFILZOMIB
     Dosage: 56 MG/M2/DAY
     Route: 065
     Dates: start: 20240430, end: 20240501
  89. CARFILZOMIB [Suspect]
     Active Substance: CARFILZOMIB
     Dosage: 56 MG/M2/DAY
     Route: 065
     Dates: start: 20240521, end: 20240522
  90. CARFILZOMIB [Suspect]
     Active Substance: CARFILZOMIB
     Dosage: 56 MG/M2/DAY
     Route: 065
     Dates: start: 20240528, end: 20240529
  91. CARFILZOMIB [Suspect]
     Active Substance: CARFILZOMIB
     Dosage: 56 MG/M2/DAY
     Route: 065
     Dates: start: 20240604, end: 20240605
  92. CARFILZOMIB [Suspect]
     Active Substance: CARFILZOMIB
     Dosage: 56 MG/M2/DAY
     Route: 065
     Dates: start: 20240618, end: 20240619
  93. CARFILZOMIB [Suspect]
     Active Substance: CARFILZOMIB
     Dosage: 56 MG/M2/DAY
     Route: 065
     Dates: start: 20240625, end: 20240626
  94. CARFILZOMIB [Suspect]
     Active Substance: CARFILZOMIB
     Dosage: 56 MG/M2/DAY
     Route: 065
     Dates: start: 20240702, end: 20240703
  95. CARFILZOMIB [Suspect]
     Active Substance: CARFILZOMIB
     Dosage: 56 MG/M2/DAY
     Route: 065
     Dates: start: 20240716, end: 20240717
  96. CARFILZOMIB [Suspect]
     Active Substance: CARFILZOMIB
     Dosage: 56 MG/M2/DAY
     Route: 065
     Dates: start: 20240723, end: 20240724
  97. CARFILZOMIB [Suspect]
     Active Substance: CARFILZOMIB
     Dosage: 56 MG/M2/DAY
     Route: 065
     Dates: start: 20240730, end: 20240731
  98. CARFILZOMIB [Suspect]
     Active Substance: CARFILZOMIB
     Dosage: 56 MG/M2/DAY
     Route: 065
     Dates: start: 20240819, end: 20240819
  99. CARFILZOMIB [Suspect]
     Active Substance: CARFILZOMIB
     Dosage: 56 MG/M2/DAY
     Route: 065
     Dates: start: 20240821, end: 20240821
  100. CARFILZOMIB [Suspect]
     Active Substance: CARFILZOMIB
     Dosage: 56 MG/M2/DAY
     Route: 065
     Dates: start: 20240827, end: 20240828
  101. CARFILZOMIB [Suspect]
     Active Substance: CARFILZOMIB
     Dosage: 56 MG/M2/DAY
     Route: 065
     Dates: start: 20240903, end: 20240904
  102. CARFILZOMIB [Suspect]
     Active Substance: CARFILZOMIB
     Dosage: 56 MG/M2/DAY
     Route: 065
     Dates: start: 20240924, end: 20240925
  103. CARFILZOMIB [Suspect]
     Active Substance: CARFILZOMIB
     Dosage: 56 MG/M2/DAY
     Route: 065
     Dates: start: 20241001, end: 20241002
  104. CARFILZOMIB [Suspect]
     Active Substance: CARFILZOMIB
     Dosage: 56 MG/M2/DAY
     Route: 065
     Dates: start: 20241008, end: 20241009
  105. CARFILZOMIB [Suspect]
     Active Substance: CARFILZOMIB
     Dosage: 56 MG/M2/DAY
     Route: 065
     Dates: start: 20241022, end: 20241023
  106. CARFILZOMIB [Suspect]
     Active Substance: CARFILZOMIB
     Dosage: 56 MG/M2/DAY
     Route: 065
     Dates: start: 20241029, end: 20241030
  107. CARFILZOMIB [Suspect]
     Active Substance: CARFILZOMIB
     Dosage: 56 MG/M2/DAY
     Route: 065
     Dates: start: 20241105, end: 20241106
  108. CARFILZOMIB [Suspect]
     Active Substance: CARFILZOMIB
     Dosage: 56 MG/M2/DAY
     Route: 065
     Dates: start: 20241119, end: 20241120
  109. CARFILZOMIB [Suspect]
     Active Substance: CARFILZOMIB
     Dosage: 56 MG/M2/DAY
     Route: 065
     Dates: start: 20241126, end: 20241127
  110. CARFILZOMIB [Suspect]
     Active Substance: CARFILZOMIB
     Dosage: 56 MG/M2/DAY
     Route: 065
     Dates: start: 20241203, end: 20241204
  111. CARFILZOMIB [Suspect]
     Active Substance: CARFILZOMIB
     Dosage: 56 MG/M2/DAY
     Route: 065
     Dates: start: 20241217, end: 20241218
  112. CARFILZOMIB [Suspect]
     Active Substance: CARFILZOMIB
     Dosage: 56 MG/M2/DAY
     Route: 065
     Dates: start: 20241224, end: 20241225
  113. VONOPRAZAN FUMARATE [Concomitant]
     Active Substance: VONOPRAZAN FUMARATE
     Indication: Prophylaxis
     Dosage: 10 MG/DAY
     Route: 065
     Dates: start: 20230725
  114. ACYCLOVIR [Concomitant]
     Active Substance: ACYCLOVIR
     Indication: Infection prophylaxis
     Dosage: 200 MG/DAY
     Route: 065
     Dates: start: 20230725
  115. ELIQUIS [Concomitant]
     Active Substance: APIXABAN
     Indication: Thrombosis prophylaxis
     Dosage: 10 MG/DAY
     Route: 065
     Dates: start: 20230725, end: 20231009
  116. ATOVAQUONE [Concomitant]
     Active Substance: ATOVAQUONE
     Indication: Infection prophylaxis
     Dosage: 2 PACKETS/DAY
     Route: 065
     Dates: start: 20240725
  117. CALONAL [Concomitant]
     Active Substance: ACETAMINOPHEN
     Indication: Product used for unknown indication
     Dosage: 400 MG/DAY
     Route: 065
     Dates: start: 20230803
  118. DIPHENHYDRAMINE HYDROCHLORIDE [Concomitant]
     Active Substance: DIPHENHYDRAMINE HYDROCHLORIDE
     Indication: Product used for unknown indication
     Dosage: 50 MG/DAY
     Route: 065
     Dates: start: 20230803
  119. METHYLCOBALAMIN [Concomitant]
     Active Substance: METHYLCOBALAMIN
     Indication: Plasma cell myeloma refractory
     Dosage: 1500 UG/DAY
     Route: 065
     Dates: start: 20240827, end: 20240923
  120. METHYLCOBALAMIN [Concomitant]
     Active Substance: METHYLCOBALAMIN
     Indication: Hypoaesthesia
  121. ZOLEDRONIC ACID [Concomitant]
     Active Substance: ZOLEDRONIC ACID
     Indication: Plasma cell myeloma refractory
     Dosage: 4 MG/DAY
     Route: 065
     Dates: start: 20230803
  122. PRIVIGEN [Concomitant]
     Active Substance: HUMAN IMMUNOGLOBULIN G
     Indication: Plasma cell myeloma refractory
     Dosage: 20 G/DAY
     Route: 065
     Dates: start: 20230913, end: 20250129
  123. PRIVIGEN [Concomitant]
     Active Substance: HUMAN IMMUNOGLOBULIN G
     Indication: Blood immunoglobulin G decreased
  124. MIROGABALIN BESYLATE [Concomitant]
     Active Substance: MIROGABALIN BESYLATE
     Indication: Plasma cell myeloma refractory
     Dosage: 5 MG/DAY
     Route: 065
     Dates: start: 20241008, end: 20241021
  125. MIROGABALIN BESYLATE [Concomitant]
     Active Substance: MIROGABALIN BESYLATE
     Indication: Hypoaesthesia

REACTIONS (9)
  - Blood immunoglobulin G decreased [Recovered/Resolved]
  - Pruritus [Recovered/Resolved]
  - Hypoaesthesia [Recovered/Resolved]
  - Platelet count decreased [Recovered/Resolved]
  - Hypertension [Not Recovered/Not Resolved]
  - Palpitations [Recovered/Resolved]
  - COVID-19 [Recovered/Resolved]
  - Purpura [Recovered/Resolved]
  - Insomnia [Not Recovered/Not Resolved]

NARRATIVE: CASE EVENT DATE: 20230817
